FAERS Safety Report 15628993 (Version 1)
Quarter: 2018Q4

REPORT INFORMATION
  Report Type: Spontaneous
  Country: US (occurrence: US)
  Receive Date: 20181116
  Receipt Date: 20181116
  Transmission Date: 20190205
  Serious: Yes (Hospitalization)
  Sender: FDA-Public Use
  Company Number: US-ALLERGAN-1853578US

PATIENT
  Age: 17 Year
  Sex: Male

DRUGS (6)
  1. VALPROIC ACID. [Suspect]
     Active Substance: VALPROIC ACID
     Indication: PRODUCT USED FOR UNKNOWN INDICATION
     Dosage: 500 MG, BID
     Route: 065
  2. DIPHENHYDRAMINE. [Suspect]
     Active Substance: DIPHENHYDRAMINE
     Indication: PRODUCT USED FOR UNKNOWN INDICATION
     Dosage: 50 MG, Q6HR AS NEEDED
     Route: 065
  3. FLUOXETINE HCL UNK [Suspect]
     Active Substance: FLUOXETINE HYDROCHLORIDE
     Indication: PRODUCT USED FOR UNKNOWN INDICATION
     Dosage: 20 MG, QD
     Route: 065
  4. DEXTROAMPHETAMINE. [Suspect]
     Active Substance: DEXTROAMPHETAMINE
     Indication: PRODUCT USED FOR UNKNOWN INDICATION
     Dosage: 5 MG, QD
     Route: 065
  5. BENZTROPINE. [Suspect]
     Active Substance: BENZTROPINE
     Indication: PRODUCT USED FOR UNKNOWN INDICATION
     Dosage: 1 MG, BID
     Route: 065
  6. LEVOTHYROXINE. [Suspect]
     Active Substance: LEVOTHYROXINE
     Indication: PRODUCT USED FOR UNKNOWN INDICATION
     Dosage: 31.25 ?G, QD
     Route: 065

REACTIONS (9)
  - Feeding disorder [Recovering/Resolving]
  - Abnormal behaviour [Recovering/Resolving]
  - Memory impairment [Recovering/Resolving]
  - Seizure [Unknown]
  - Anger [Unknown]
  - Choreoathetosis [Recovering/Resolving]
  - Gait disturbance [Recovering/Resolving]
  - Speech disorder [Recovering/Resolving]
  - Aggression [Unknown]
